FAERS Safety Report 22049748 (Version 1)
Quarter: 2023Q1

REPORT INFORMATION
  Report Type: Spontaneous
  Country: AU (occurrence: AU)
  Receive Date: 20230301
  Receipt Date: 20230301
  Transmission Date: 20230418
  Serious: Yes (Other)
  Sender: FDA-Public Use
  Company Number: AU-BAXTER-2023BAX013945

PATIENT
  Sex: Female

DRUGS (10)
  1. DOXORUBICIN [Suspect]
     Active Substance: DOXORUBICIN
     Indication: Follicular lymphoma stage III
     Dosage: (START DATE: 2017, STOP DATE: JAN2019) AS A PART OF RCHOPX6 CYCLES
     Route: 065
  2. DOXORUBICIN [Suspect]
     Active Substance: DOXORUBICIN
     Indication: Disease recurrence
  3. CYCLOPHOSPHAMIDE [Suspect]
     Active Substance: CYCLOPHOSPHAMIDE
     Indication: Follicular lymphoma stage III
     Dosage: (START DATE: 2017, STOP DATE: JAN2019) AS A PART OF RCHOPX6 CYCLES
     Route: 065
  4. CYCLOPHOSPHAMIDE [Suspect]
     Active Substance: CYCLOPHOSPHAMIDE
     Indication: Disease recurrence
  5. RITUXIMAB [Suspect]
     Active Substance: RITUXIMAB
     Indication: Follicular lymphoma stage III
     Dosage: (START DATE: 2017, STOP DATE: JAN2019) AS A PART OF RCHOPX6 CYCLES FOLLOWED BY RITUXIMAB MAINTENANCE
     Route: 065
  6. RITUXIMAB [Suspect]
     Active Substance: RITUXIMAB
     Indication: Disease recurrence
  7. PREDNISONE [Suspect]
     Active Substance: PREDNISONE
     Indication: Follicular lymphoma stage III
     Dosage: (START DATE: 2017, STOP DATE: JAN2019) AS A PART OF RCHOPX6 CYCLES
     Route: 065
  8. PREDNISONE [Suspect]
     Active Substance: PREDNISONE
     Indication: Disease recurrence
  9. VINCRISTINE [Suspect]
     Active Substance: VINCRISTINE
     Indication: Follicular lymphoma stage III
     Dosage: (START DATE: 2017, STOP DATE: JAN2019) AS A PART OF RCHOPX6 CYCLES
     Route: 065
  10. VINCRISTINE [Suspect]
     Active Substance: VINCRISTINE
     Indication: Disease recurrence

REACTIONS (3)
  - Follicular lymphoma [Unknown]
  - Disease progression [Unknown]
  - Lymphadenopathy [Unknown]
